FAERS Safety Report 6631765-6 (Version None)
Quarter: 2010Q1

REPORT INFORMATION
  Report Type: 
  Country: None (occurrence: None)
  Receive Date: 20100312
  Receipt Date: 20100309
  Transmission Date: 20100710
  Serious: Yes (Other)
  Sender: FDA-Public Use
  Company Number: US-RB-005469-08

PATIENT
  Sex: Female

DRUGS (22)
  1. SUBUTEX [Suspect]
     Route: 060
     Dates: start: 20080909, end: 20081114
  2. SUBOXONE [Suspect]
     Route: 060
     Dates: start: 20080814, end: 20080818
  3. SUBOXONE [Suspect]
     Route: 060
     Dates: start: 20080819, end: 20080901
  4. SUBOXONE [Suspect]
     Route: 060
     Dates: start: 20080902, end: 20080908
  5. LEVLITE [Concomitant]
     Indication: DRUG USE FOR UNKNOWN INDICATION
     Dosage: 1 TABLET DAILY
     Route: 048
     Dates: start: 20070326, end: 20080909
  6. CAMPRAL [Concomitant]
     Dosage: 666 MG TAKEN THREE TIMES DAILY AS NEEDED.
     Route: 048
     Dates: start: 20080509, end: 20080909
  7. UNISOM [Concomitant]
     Indication: INSOMNIA
     Route: 048
     Dates: start: 20081009, end: 20081020
  8. LAMICTAL [Concomitant]
     Route: 048
     Dates: start: 20080630, end: 20080902
  9. AMOXIL [Concomitant]
     Indication: DRUG USE FOR UNKNOWN INDICATION
     Route: 048
     Dates: start: 20080923, end: 20081009
  10. VITAMIN B6 [Concomitant]
     Indication: DRUG USE FOR UNKNOWN INDICATION
     Route: 048
     Dates: start: 20081009, end: 20090320
  11. LEXAPRO [Concomitant]
     Indication: DRUG USE FOR UNKNOWN INDICATION
     Route: 048
     Dates: start: 20061006
  12. ADVAIR DISKUS 100/50 [Concomitant]
     Indication: DRUG USE FOR UNKNOWN INDICATION
     Dosage: 250/50MCG 1 PUFF TWICE DAILY
     Route: 055
     Dates: start: 20070110
  13. ALBUTEROL SULATE [Concomitant]
     Indication: WHEEZING
     Dosage: 2 PUFFS EVERY FOUR HOURS AS NEEDED
     Route: 055
     Dates: start: 20070109, end: 20081113
  14. FLONASE [Concomitant]
     Indication: SINUSITIS
     Dosage: 2 SPRAYS EACH NOSTRIL AS NEEDED
     Route: 045
     Dates: start: 20070205, end: 20090320
  15. METHADOSE [Suspect]
     Route: 048
     Dates: start: 20090120, end: 20090319
  16. METHADOSE [Suspect]
     Route: 048
     Dates: start: 20081114, end: 20090119
  17. METHADOSE [Suspect]
     Route: 048
     Dates: start: 20090320
  18. NICODERM CQ [Concomitant]
     Indication: DRUG USE FOR UNKNOWN INDICATION
     Dosage: 14 MG FOR 2 WEEKS, THEN 7 MG FOR 6 WEEKS
     Route: 062
     Dates: start: 20081114, end: 20090320
  19. AMOXICILLIN [Concomitant]
     Indication: DRUG USE FOR UNKNOWN INDICATION
     Route: 048
     Dates: start: 20090320, end: 20090330
  20. METAMUCIL-2 [Concomitant]
     Indication: DRUG USE FOR UNKNOWN INDICATION
     Dosage: 1 TEASPOON TWICE DAILY
     Route: 048
     Dates: start: 20090120
  21. COLACE [Concomitant]
     Indication: DRUG USE FOR UNKNOWN INDICATION
     Route: 048
     Dates: start: 20090120
  22. PROAIR HFA [Concomitant]
     Indication: WHEEZING
     Dosage: 2 PUFFS EVERY FOUR HOURS AS NEEDED.
     Route: 055
     Dates: start: 20081114

REACTIONS (2)
  - DRUG EXPOSURE DURING PREGNANCY [None]
  - POSTPARTUM HAEMORRHAGE [None]
